FAERS Safety Report 13931371 (Version 1)
Quarter: 2017Q3

REPORT INFORMATION
  Report Type: Spontaneous
  Country: US (occurrence: US)
  Receive Date: 20170903
  Receipt Date: 20170903
  Transmission Date: 20171127
  Serious: No
  Sender: FDA-Public Use
  Company Number: US-ASTRAZENECA-2017SE86213

PATIENT
  Sex: Female

DRUGS (1)
  1. BYDUREON [Suspect]
     Active Substance: EXENATIDE
     Route: 065
     Dates: start: 201708

REACTIONS (4)
  - Pain in extremity [Unknown]
  - Abdominal distension [Unknown]
  - Pain [Not Recovered/Not Resolved]
  - Paraesthesia [Unknown]
